FAERS Safety Report 18992292 (Version 1)
Quarter: 2021Q1

REPORT INFORMATION
  Report Type: Spontaneous
  Country: US (occurrence: US)
  Receive Date: 20210310
  Receipt Date: 20210310
  Transmission Date: 20210420
  Serious: Yes (Hospitalization)
  Sender: FDA-Public Use
  Company Number: None

PATIENT
  Age: 64 Year
  Sex: Female

DRUGS (11)
  1. MECLIZINE [Concomitant]
     Active Substance: MECLIZINE HYDROCHLORIDE
     Dates: start: 20210308
  2. ENBREL [Suspect]
     Active Substance: ETANERCEPT
     Indication: RHEUMATOID ARTHRITIS
     Dosage: OTHER FREQUENCY:QWK;?
     Route: 058
     Dates: start: 20200121
  3. TRIAMCINOLONE LOT [Concomitant]
     Dates: start: 20200306
  4. SERTRALINE [Concomitant]
     Active Substance: SERTRALINE HYDROCHLORIDE
     Dates: start: 20200622
  5. PREDNISONE. [Concomitant]
     Active Substance: PREDNISONE
     Dates: start: 20200611
  6. ONDANSETRON [Concomitant]
     Active Substance: ONDANSETRON
     Dates: start: 20200709
  7. OMEPRAZOLE. [Concomitant]
     Active Substance: OMEPRAZOLE
     Dates: start: 20201105
  8. MELOXICAM. [Concomitant]
     Active Substance: MELOXICAM
     Dates: start: 20200918
  9. BUDES/FORMOT AER [Concomitant]
     Dates: start: 20201013
  10. GABAPENTIN. [Concomitant]
     Active Substance: GABAPENTIN
     Dates: start: 20201104
  11. CELECOXIB. [Concomitant]
     Active Substance: CELECOXIB
     Dates: start: 20201104

REACTIONS (1)
  - Hospitalisation [None]

NARRATIVE: CASE EVENT DATE: 20210305
